FAERS Safety Report 25018181 (Version 1)
Quarter: 2025Q1

REPORT INFORMATION
  Report Type: Spontaneous
  Country: US (occurrence: US)
  Receive Date: 20250227
  Receipt Date: 20250227
  Transmission Date: 20250408
  Serious: Yes (Other)
  Sender: SLATE RUN
  Company Number: US-SLATERUN-2025SRSPO00023

PATIENT
  Age: 67 Year
  Sex: Male
  Weight: 200 kg

DRUGS (2)
  1. PROMETHAZINE DM ORAL SOLUTION [Suspect]
     Active Substance: ALCOHOL\DEXTROMETHORPHAN HYDROBROMIDE\PROMETHAZINE HYDROCHLORIDE
     Indication: Cough
     Route: 065
     Dates: start: 20250118, end: 20250118
  2. AZITHROMYCIN [Concomitant]
     Active Substance: AZITHROMYCIN
     Indication: Product used for unknown indication
     Route: 065

REACTIONS (4)
  - Paralysis [Recovered/Resolved]
  - Pain in extremity [Unknown]
  - Muscular weakness [Unknown]
  - Blood arsenic increased [Unknown]

NARRATIVE: CASE EVENT DATE: 20250118
